FAERS Safety Report 4799812-4 (Version None)
Quarter: 2005Q4

REPORT INFORMATION
  Report Type: 
  Country: None (occurrence: None)
  Receive Date: 20051013
  Receipt Date: 20051007
  Transmission Date: 20060501
  Serious: Yes (Hospitalization)
  Sender: FDA-Public Use
  Company Number: HQWYE929307OCT05

PATIENT
  Age: 79 Year
  Sex: Female

DRUGS (8)
  1. AMIODARONE HCL [Suspect]
     Dosage: 200 MG 1X PER 1 DAY, ORAL
     Route: 048
     Dates: start: 20040515, end: 20050908
  2. PREDNISONE [Concomitant]
  3. DIAMICRON (GLICLAZIDE) [Concomitant]
  4. POTASSIUM CHLORIDE [Concomitant]
  5. OMEPRAZOLE [Concomitant]
  6. SPECIAFOLDINE (FOLIC ACID) [Concomitant]
  7. FERROUS SULFATE TAB [Concomitant]
  8. CONTRAMAL 9TAMADOL HYDROCHLORIDE) [Concomitant]

REACTIONS (4)
  - HYPOKALAEMIA [None]
  - LEFT VENTRICULAR FAILURE [None]
  - PULMONARY OEDEMA [None]
  - TORSADE DE POINTES [None]
